FAERS Safety Report 4585619-X (Version None)
Quarter: 2005Q1

REPORT INFORMATION
  Report Type: 
  Country: None (occurrence: None)
  Receive Date: 20050217
  Receipt Date: 20050209
  Transmission Date: 20050727
  Serious: Yes (Death, Hospitalization)
  Sender: FDA-Public Use
  Company Number: US-JNJFOC-20041200160

PATIENT
  Age: 83 Year
  Sex: Male

DRUGS (6)
  1. DURAGESIC [Suspect]
     Route: 062
     Dates: start: 20020101
  2. DURAGESIC [Suspect]
     Route: 062
     Dates: start: 20020101
  3. DURAGESIC [Suspect]
     Route: 062
     Dates: start: 20020101
  4. NEURONTIN [Concomitant]
  5. PLAVIX [Concomitant]
  6. ASACOL [Concomitant]

REACTIONS (6)
  - CONFUSIONAL STATE [None]
  - DEATH [None]
  - DECREASED APPETITE [None]
  - DIZZINESS [None]
  - FALL [None]
  - WEIGHT DECREASED [None]
